FAERS Safety Report 7753021-5 (Version None)
Quarter: 2011Q3

REPORT INFORMATION
  Report Type: 
  Country: None (occurrence: None)
  Receive Date: 20110915
  Receipt Date: 20110906
  Transmission Date: 20111222
  Serious: Yes (Death)
  Sender: FDA-Public Use
  Company Number: GT-PFIZER INC-2011216937

PATIENT
  Age: 79 Year
  Sex: Male

DRUGS (2)
  1. PANTOPRAZOLE [Suspect]
     Dosage: 40 MG, UNK
  2. DIOVAN [Suspect]
     Dosage: 160 MG, UNK

REACTIONS (1)
  - DEATH [None]
